FAERS Safety Report 7207075-5 (Version None)
Quarter: 2011Q1

REPORT INFORMATION
  Report Type: 
  Country: None (occurrence: None)
  Receive Date: 20110103
  Receipt Date: 20101230
  Transmission Date: 20110831
  Serious: Yes (Life-Threatening)
  Sender: FDA-Public Use
  Company Number: B0691600A

PATIENT
  Sex: Male

DRUGS (5)
  1. AUGMENTIN [Suspect]
     Route: 065
  2. LOVENOX [Suspect]
     Indication: PROPHYLAXIS
     Route: 058
     Dates: start: 20101111, end: 20100101
  3. CORDARONE [Suspect]
     Route: 065
  4. HEPARINE CHOAY [Suspect]
     Indication: PROPHYLAXIS
     Route: 042
     Dates: start: 20101116, end: 20101120
  5. NEXIUM [Suspect]
     Route: 065

REACTIONS (1)
  - HEPARIN-INDUCED THROMBOCYTOPENIA [None]
